FAERS Safety Report 16959551 (Version 1)
Quarter: 2019Q4

REPORT INFORMATION
  Report Type: Spontaneous
  Country: US (occurrence: US)
  Receive Date: 20191025
  Receipt Date: 20191025
  Transmission Date: 20200122
  Serious: No
  Sender: FDA-Public Use
  Company Number: US-UNITED THERAPEUTICS-UNT-2019-017588

PATIENT
  Sex: Female

DRUGS (1)
  1. REMODULIN [Suspect]
     Active Substance: TREPROSTINIL
     Indication: PULMONARY ARTERIAL HYPERTENSION
     Dosage: 0.0899 ?G/KG, CONTINUING
     Route: 058
     Dates: start: 201810

REACTIONS (3)
  - Pain in jaw [Unknown]
  - Diarrhoea [Unknown]
  - Wrong dose [Unknown]
